FAERS Safety Report 22287802 (Version 1)
Quarter: 2023Q2

REPORT INFORMATION
  Report Type: Spontaneous
  Country: GB (occurrence: GB)
  Receive Date: 20230505
  Receipt Date: 20230505
  Transmission Date: 20230722
  Serious: Yes (Life-Threatening, Hospitalization)
  Sender: FDA-Public Use
  Company Number: None

PATIENT
  Sex: Female

DRUGS (9)
  1. ALENDRONIC ACID [Suspect]
     Active Substance: ALENDRONIC ACID
     Indication: Product used for unknown indication
     Dosage: STRENGTH : 70 MG, ONE TO BE TAKEN ON THE SAME DAY EACH WEEK - MONDAY - NOF -- FRACTURE [B], THERAPY
     Dates: end: 20230424
  2. CALCIUM CARBONATE\CHOLECALCIFEROL [Concomitant]
     Active Substance: CALCIUM CARBONATE\CHOLECALCIFEROL
     Indication: Product used for unknown indication
     Dosage: ADCAL-D3  TUTTI FRUTTI TWO CHEWABLE TABLETS PER DAY [B] , ADCAL-D3 750MG/200UNIT CAPLETS (PROSTRAKAN
  3. CHOLECALCIFEROL [Concomitant]
     Active Substance: CHOLECALCIFEROL
     Indication: Product used for unknown indication
     Dosage: COLECALCIFEROL 20,000UNIT CAPSULES ONE CAPSULE ONCE A MONTH-- NOT HAD THIS MONTH AS PHARMACY DID NOT
     Dates: end: 20230424
  4. HYPROMELLOSES [Concomitant]
     Active Substance: HYPROMELLOSES
     Indication: Product used for unknown indication
     Dosage: HYPROMELLOSE 0.3% TO BE USED WHEN REQUIRED - PRN
  5. MORPHINE [Concomitant]
     Active Substance: MORPHINE
     Indication: Pain
     Dosage: MORPHINE SULFATE 10MG/5ML ORAL SOLUTION 2.5 ML EVERY FOUR HOURS IF REQUIRED FOR PAIN(MAXIMUM 6 DOSES
     Route: 048
  6. OMEPRAZOLE [Concomitant]
     Active Substance: OMEPRAZOLE
     Indication: Product used for unknown indication
     Dosage: 40 MILLIGRAM DAILY; STRENGTH : 20MG, ONE TO BE TAKEN TWICE A DAY 56 CAPSULE - OM AND ON [B]
     Dates: end: 20230424
  7. PRAMIPEXOLE [Concomitant]
     Active Substance: PRAMIPEXOLE
     Indication: Product used for unknown indication
     Dosage: STRENGTH : 88MICROGRAM, ONE TO FOUR TABLETS ONCE DAILY 2-3 HOURS BEFORE BEDTIME
     Dates: start: 20230424
  8. SERTRALINE [Concomitant]
     Active Substance: SERTRALINE HYDROCHLORIDE
     Indication: Product used for unknown indication
     Dosage: 2 DOSAGE FORMS DAILY; STRENGTH : 100 MG, TWO TABLETS A DAY - OM AND ON [B]
     Dates: end: 20230424
  9. THIAMINE [Concomitant]
     Active Substance: THIAMINE
     Indication: Product used for unknown indication
     Dosage: 300 MILLIGRAM DAILY; STRENGTH : 100 MG, ONE TO BE TAKEN THREE TIMES A DAY - OM NN ON
     Dates: start: 20230424

REACTIONS (1)
  - Femoral neck fracture [Recovered/Resolved]
